FAERS Safety Report 4917985-7 (Version None)
Quarter: 2006Q1

REPORT INFORMATION
  Report Type: 
  Country: None (occurrence: None)
  Receive Date: 20060221
  Receipt Date: 20051031
  Transmission Date: 20060701
  Serious: Yes (Hospitalization)
  Sender: FDA-Public Use
  Company Number: US-MERCK-0511USA00114

PATIENT
  Age: 57 Year
  Sex: Male
  Weight: 98 kg

DRUGS (12)
  1. VICODIN [Concomitant]
     Route: 065
     Dates: start: 20001010, end: 20020501
  2. VIOXX [Suspect]
     Indication: BACK PAIN
     Route: 048
     Dates: start: 20020628, end: 20030208
  3. SYNTHROID [Concomitant]
     Route: 065
  4. VIOXX [Suspect]
     Route: 048
     Dates: start: 20020628, end: 20030208
  5. LIPITOR [Concomitant]
     Indication: BLOOD CHOLESTEROL INCREASED
     Route: 065
     Dates: start: 20010726, end: 20050101
  6. ALLEGRA [Concomitant]
     Route: 065
  7. NEURONTIN [Concomitant]
     Route: 065
  8. LESCOL [Concomitant]
     Route: 065
  9. CEPHALEXIN [Concomitant]
     Route: 065
  10. CODEINE [Concomitant]
     Route: 065
     Dates: start: 19980223, end: 20040721
  11. IBUPROFEN [Concomitant]
     Route: 065
     Dates: start: 19980121, end: 20040608
  12. ZOCOR [Concomitant]
     Indication: BLOOD CHOLESTEROL INCREASED
     Route: 065
     Dates: start: 20010420, end: 20040303

REACTIONS (4)
  - GASTROOESOPHAGEAL REFLUX DISEASE [None]
  - HERNIA [None]
  - HYPERTENSION [None]
  - MYOCARDIAL INFARCTION [None]
